FAERS Safety Report 12499426 (Version 2)
Quarter: 2018Q3

REPORT INFORMATION
  Report Type: Report from Study
  Country: None (occurrence: DE)
  Receive Date: 20160627
  Receipt Date: 20180727
  Transmission Date: 20181010
  Serious: Yes (Hospitalization, Other)
  Sender: FDA-Public Use
  Company Number: DE-ABBVIE-16K-062-1552848-00

PATIENT
  Sex: Female

DRUGS (8)
  1. PANTOPRAZOLE [Concomitant]
     Active Substance: PANTOPRAZOLE
     Indication: PRODUCT USED FOR UNKNOWN INDICATION
  2. BISOPROLOL [Concomitant]
     Active Substance: BISOPROLOL
     Indication: PRODUCT USED FOR UNKNOWN INDICATION
     Dosage: 1?0?0
     Dates: start: 2008
  3. HUMIRA [Suspect]
     Active Substance: ADALIMUMAB
     Route: 058
  4. ARCOXIA [Concomitant]
     Active Substance: ETORICOXIB
     Indication: PRODUCT USED FOR UNKNOWN INDICATION
  5. RAMILICH [Concomitant]
     Active Substance: RAMIPRIL
     Indication: PRODUCT USED FOR UNKNOWN INDICATION
     Dosage: A HALF TABLET, 1?0?0
     Dates: start: 2008
  6. HUMIRA [Suspect]
     Active Substance: ADALIMUMAB
     Indication: ANKYLOSING SPONDYLITIS
     Route: 058
     Dates: start: 20120909, end: 201603
  7. IBUPROFEN. [Concomitant]
     Active Substance: IBUPROFEN
     Indication: PRODUCT USED FOR UNKNOWN INDICATION
  8. RAMIPRIL. [Concomitant]
     Active Substance: RAMIPRIL
     Indication: PRODUCT USED FOR UNKNOWN INDICATION

REACTIONS (14)
  - Fracture [Recovered/Resolved]
  - Exertional headache [Not Recovered/Not Resolved]
  - Bone marrow disorder [Recovered/Resolved]
  - Dislocation of vertebra [Unknown]
  - Ligament sprain [Unknown]
  - Spinal deformity [Recovered/Resolved]
  - Pain [Recovering/Resolving]
  - Body height increased [Unknown]
  - Post procedural complication [Unknown]
  - Cervical vertebral fracture [Not Recovered/Not Resolved]
  - Intervertebral disc disorder [Recovering/Resolving]
  - Spinal disorder [Not Recovered/Not Resolved]
  - Musculoskeletal stiffness [Unknown]
  - Spinal instability [Recovered/Resolved]

NARRATIVE: CASE EVENT DATE: 2016
